FAERS Safety Report 14424402 (Version 1)
Quarter: 2018Q1

REPORT INFORMATION
  Report Type: Spontaneous
  Country: US (occurrence: US)
  Receive Date: 20180123
  Receipt Date: 20180123
  Transmission Date: 20180509
  Serious: Yes (Hospitalization)
  Sender: FDA-Public Use
  Company Number: US-VALIDUS PHARMACEUTICALS LLC-US-2018VAL000140

PATIENT
  Age: 60 Year
  Sex: Female

DRUGS (5)
  1. POLYSTYRENE SULFONATE SODIUM [Suspect]
     Active Substance: SODIUM POLYSTYRENE SULFONATE
     Indication: HYPERKALAEMIA
  2. FUROSEMIDE. [Suspect]
     Active Substance: FUROSEMIDE
     Indication: CHRONIC KIDNEY DISEASE
     Dosage: UNK
     Route: 065
  3. SORBITOL. [Suspect]
     Active Substance: SORBITOL
     Indication: HYPERKALAEMIA
  4. POLYSTYRENE SULFONATE SODIUM [Suspect]
     Active Substance: SODIUM POLYSTYRENE SULFONATE
     Indication: CONSTIPATION
     Dosage: 30 G, UNK
     Route: 065
  5. SORBITOL. [Suspect]
     Active Substance: SORBITOL
     Indication: CONSTIPATION
     Dosage: UNK
     Route: 065

REACTIONS (11)
  - Large intestinal ulcer [Unknown]
  - Ileal ulcer [Unknown]
  - Pneumoperitoneum [Unknown]
  - Urine output decreased [Unknown]
  - Drug ineffective [Unknown]
  - Mucosal ulceration [Unknown]
  - Intestinal perforation [Unknown]
  - Necrosis [Unknown]
  - Purulent discharge [Unknown]
  - Intestinal ulcer [Unknown]
  - Abdominal abscess [Unknown]
